FAERS Safety Report 4872297-5 (Version None)
Quarter: 2005Q4

REPORT INFORMATION
  Report Type: 
  Country: None (occurrence: None)
  Receive Date: 20051201
  Receipt Date: 20050802
  Transmission Date: 20060501
  Serious: No
  Sender: FDA-Public Use
  Company Number: 2005PV000799

PATIENT
  Age: 65 Year
  Sex: Female
  Weight: 93.8946 kg

DRUGS (5)
  1. BYETTA [Suspect]
     Indication: DIABETES MELLITUS NON-INSULIN-DEPENDENT
     Dosage: 5 MCG;BID;SC
     Route: 058
     Dates: start: 20050801
  2. PRANDIN [Suspect]
     Dosage: 1 MG;TID;PO
     Route: 048
  3. AZMACORT [Concomitant]
  4. ALBUTEROL SULFATE AUTOHALER [Concomitant]
  5. INTAL [Concomitant]

REACTIONS (10)
  - ABDOMINAL DISTENSION [None]
  - BLOOD GLUCOSE INCREASED [None]
  - CONSTIPATION [None]
  - ERUCTATION [None]
  - FEELING ABNORMAL [None]
  - NAUSEA [None]
  - POLLAKIURIA [None]
  - SINUS HEADACHE [None]
  - SOMNOLENCE [None]
  - URINE OUTPUT DECREASED [None]
